FAERS Safety Report 7917073-1 (Version None)
Quarter: 2011Q4

REPORT INFORMATION
  Report Type: 
  Country: None (occurrence: None)
  Receive Date: 20111116
  Receipt Date: 20111111
  Transmission Date: 20120403
  Serious: Yes (Life-Threatening)
  Sender: FDA-Public Use
  Company Number: IT-PFIZER INC-2011277871

PATIENT
  Age: 75 Year
  Sex: Female

DRUGS (6)
  1. LORAZEPAM [Concomitant]
     Dosage: 3 DF, UNK
     Route: 048
  2. CAMPTOSAR [Suspect]
     Dosage: 300 MG, CYCLIC
     Route: 042
     Dates: start: 20111014, end: 20111014
  3. AVASTIN [Suspect]
     Dosage: 390 MG, CYCLIC
     Route: 042
     Dates: start: 20111014, end: 20111014
  4. ALOXI [Concomitant]
     Dosage: 250 UG, UNK
     Route: 042
     Dates: start: 20111014, end: 20111014
  5. DESAMETASONE FOSFATO BIOLOGICI ITALIA [Concomitant]
     Dosage: 8 MG, UNK
     Route: 042
     Dates: start: 20111014, end: 20111014
  6. RANIDIL [Concomitant]
     Dosage: 1 DF, UNK
     Route: 042

REACTIONS (2)
  - THROAT IRRITATION [None]
  - DYSPHAGIA [None]
